FAERS Safety Report 4728316-X (Version None)
Quarter: 2005Q3

REPORT INFORMATION
  Report Type: 
  Country: None (occurrence: None)
  Receive Date: 20050729
  Receipt Date: 20050719
  Transmission Date: 20060218
  Serious: Yes (Death, Hospitalization, Other)
  Sender: FDA-Public Use
  Company Number: US-JNJFOC-20050401544

PATIENT
  Sex: Female

DRUGS (28)
  1. REMICADE [Suspect]
     Route: 042
  2. REMICADE [Suspect]
     Route: 042
  3. REMICADE [Suspect]
     Route: 042
  4. REMICADE [Suspect]
     Route: 042
  5. REMICADE [Suspect]
     Route: 042
  6. REMICADE [Suspect]
     Route: 042
  7. REMICADE [Suspect]
     Route: 042
  8. REMICADE [Suspect]
     Route: 042
  9. REMICADE [Suspect]
     Route: 042
  10. REMICADE [Suspect]
     Route: 042
  11. REMICADE [Suspect]
     Route: 042
  12. REMICADE [Suspect]
     Indication: CONNECTIVE TISSUE DISORDER
     Route: 042
  13. MEDROL [Concomitant]
  14. HUMIBID LA [Concomitant]
  15. NASACORT [Concomitant]
  16. DUONEB [Concomitant]
  17. DUONEB [Concomitant]
  18. SYNTHROID [Concomitant]
  19. PLAQUENIL [Concomitant]
  20. AMBIEN [Concomitant]
  21. AVAPRO [Concomitant]
  22. TOPROL-XL [Concomitant]
  23. PLAVIX [Concomitant]
  24. FUROSEMIDE [Concomitant]
  25. FOSAMAX [Concomitant]
  26. ADVAIR DISKUS 100/50 [Concomitant]
  27. ADVAIR DISKUS 100/50 [Concomitant]
  28. DETROL LA [Concomitant]

REACTIONS (8)
  - ABDOMINAL PAIN [None]
  - ASTHENIA [None]
  - CANDIDIASIS [None]
  - CHRONIC OBSTRUCTIVE PULMONARY DISEASE [None]
  - COLORECTAL CANCER [None]
  - DEHYDRATION [None]
  - FRACTURE [None]
  - PNEUMONIA LEGIONELLA [None]
